FAERS Safety Report 17338717 (Version 1)
Quarter: 2020Q1

REPORT INFORMATION
  Report Type: Spontaneous
  Country: US (occurrence: US)
  Receive Date: 20200128
  Receipt Date: 20200128
  Transmission Date: 20200409
  Serious: Yes (Other)
  Sender: FDA-Public Use
  Company Number: None

PATIENT
  Age: 55 Year
  Sex: Male
  Weight: 80.55 kg

DRUGS (7)
  1. POTASSIUM [Concomitant]
     Active Substance: POTASSIUM
  2. OMEGA 3 [Concomitant]
     Active Substance: OMEGA-3 FATTY ACIDS
  3. DILTIAZEM ER240MG CAP PAR PAR C831 [Suspect]
     Active Substance: DILTIAZEM HYDROCHLORIDE
     Indication: BLOOD PRESSURE MEASUREMENT
     Route: 048
     Dates: start: 20200126
  4. CALCIUM-MAGNESIUM-D3 [Concomitant]
  5. DILTIAZEM ER240MG CAP PAR PAR C831 [Suspect]
     Active Substance: DILTIAZEM HYDROCHLORIDE
     Indication: ARRHYTHMIA
     Route: 048
     Dates: start: 20200126
  6. METOPROLOL. [Concomitant]
     Active Substance: METOPROLOL
  7. IRON COMPLEX [Concomitant]

REACTIONS (4)
  - Product substitution issue [None]
  - Atrial fibrillation [None]
  - Arrhythmia [None]
  - Therapeutic response decreased [None]

NARRATIVE: CASE EVENT DATE: 20200126
